FAERS Safety Report 12638418 (Version 2)
Quarter: 2016Q4

REPORT INFORMATION
  Report Type: Spontaneous
  Country: US (occurrence: US)
  Receive Date: 20160809
  Receipt Date: 20161108
  Transmission Date: 20170207
  Serious: No
  Sender: FDA-Public Use
  Company Number: US-SA-2016SA111025

PATIENT
  Age: 65 Year
  Sex: Female
  Weight: 72.57 kg

DRUGS (6)
  1. LANOXIN [Concomitant]
     Active Substance: DIGOXIN
     Indication: HEART RATE
     Dates: start: 2011
  2. Z PACK [Concomitant]
     Active Substance: AZITHROMYCIN DIHYDRATE
  3. PRALUENT [Suspect]
     Active Substance: ALIROCUMAB
     Indication: LOW DENSITY LIPOPROTEIN INCREASED
     Route: 065
     Dates: start: 20160107
  4. PRILOSEC [Concomitant]
     Active Substance: OMEPRAZOLE MAGNESIUM
     Indication: GASTROOESOPHAGEAL REFLUX DISEASE
     Dates: start: 2006
  5. ALIROCUMAB PREFILLED PEN [Concomitant]
     Active Substance: ALIROCUMAB
     Indication: LOW DENSITY LIPOPROTEIN INCREASED
     Route: 065
     Dates: start: 20160107
  6. ELMIRON [Concomitant]
     Active Substance: PENTOSAN POLYSULFATE SODIUM
     Indication: BLADDER DISORDER
     Dates: start: 2011

REACTIONS (5)
  - Constipation [Recovering/Resolving]
  - Contusion [Recovering/Resolving]
  - Gastrointestinal tract irritation [Recovering/Resolving]
  - Malaise [Recovering/Resolving]
  - Diarrhoea [Recovering/Resolving]

NARRATIVE: CASE EVENT DATE: 20160526
